FAERS Safety Report 4396549-0 (Version None)
Quarter: 2004Q2

REPORT INFORMATION
  Report Type: 
  Country: None (occurrence: None)
  Receive Date: 20040621
  Receipt Date: 20030930
  Transmission Date: 20050107
  Serious: Yes (Death)
  Sender: FDA-Public Use
  Company Number: USA-2003-0009832

PATIENT
  Age: 42 Year
  Sex: Male
  Weight: 122.4 kg

DRUGS (6)
  1. OXYCODONE HCL [Suspect]
  2. CHOLINE MAGNESIUM TRISALICYLATE [Suspect]
  3. COCAINE [Suspect]
  4. DIPHENHYDRAMINE [Suspect]
  5. NICOTINE [Suspect]
  6. CAFFEINE [Concomitant]

REACTIONS (2)
  - ACCIDENTAL OVERDOSE [None]
  - MULTIPLE DRUG OVERDOSE [None]
